FAERS Safety Report 8235336-X (Version None)
Quarter: 2012Q1

REPORT INFORMATION
  Report Type: 
  Country: None (occurrence: None)
  Receive Date: 20120326
  Receipt Date: 20120316
  Transmission Date: 20120608
  Serious: Yes (Hospitalization, Other)
  Sender: FDA-Public Use
  Company Number: US-ELI_LILLY_AND_COMPANY-US201203006000

PATIENT
  Sex: Female

DRUGS (2)
  1. LANTUS [Concomitant]
     Dosage: UNK
  2. HUMALOG [Suspect]
     Indication: DIABETES MELLITUS
     Dosage: 8 U, TID

REACTIONS (10)
  - DRUG INEFFECTIVE [None]
  - MALAISE [None]
  - HYPOACUSIS [None]
  - HOSPITALISATION [None]
  - BLOOD GLUCOSE FLUCTUATION [None]
  - VISUAL IMPAIRMENT [None]
  - PYREXIA [None]
  - BLOOD GLUCOSE DECREASED [None]
  - EYE PAIN [None]
  - EYE DISORDER [None]
